FAERS Safety Report 11244814 (Version 1)
Quarter: 2015Q3

REPORT INFORMATION
  Report Type: Spontaneous
  Country: US (occurrence: US)
  Receive Date: 20150707
  Receipt Date: 20150707
  Transmission Date: 20151125
  Serious: Yes (Other)
  Sender: FDA-Public Use
  Company Number: US-BAYER-2015-368076

PATIENT
  Sex: Female

DRUGS (1)
  1. MIRENA [Suspect]
     Active Substance: LEVONORGESTREL
     Indication: CONTRACEPTION
     Dosage: 20 MCG/24HR, CONT
     Dates: start: 2012, end: 20150623

REACTIONS (7)
  - Device difficult to use [None]
  - Complication of device removal [None]
  - Procedural pain [None]
  - Device expulsion [None]
  - Embedded device [None]
  - Metrorrhagia [None]
  - Device breakage [None]

NARRATIVE: CASE EVENT DATE: 2014
